FAERS Safety Report 9621406 (Version 4)
Quarter: 2013Q4

REPORT INFORMATION
  Report Type: Spontaneous
  Country: US (occurrence: US)
  Receive Date: 20131015
  Receipt Date: 20131220
  Transmission Date: 20140711
  Serious: No
  Sender: FDA-Public Use
  Company Number: US-PFIZER INC-2013292643

PATIENT
  Age: 35 Year
  Sex: Female

DRUGS (2)
  1. METAXALONE [Suspect]
     Indication: ANALGESIC THERAPY
     Dosage: 800 MG, 4X/DAY
     Route: 048
  2. KETOROLAC [Concomitant]
     Dosage: 10 MG, AS NEEDED (TAKE 1 TABLET BY MOUTH EVERY 6 HOURS AS NEEDED FOR 5 DAYS)
     Route: 048

REACTIONS (7)
  - Drug ineffective [Unknown]
  - Insomnia [Recovered/Resolved]
  - Restlessness [Unknown]
  - Nightmare [Unknown]
  - Screaming [Unknown]
  - Crying [Unknown]
  - Affective disorder [Recovered/Resolved]
